FAERS Safety Report 7958094-2 (Version None)
Quarter: 2011Q4

REPORT INFORMATION
  Report Type: 
  Country: None (occurrence: None)
  Receive Date: 20111130
  Receipt Date: 20111115
  Transmission Date: 20120403
  Serious: Yes (Hospitalization)
  Sender: FDA-Public Use
  Company Number: TPA2011A07715

PATIENT
  Age: 9 Decade
  Sex: Male

DRUGS (1)
  1. PIOGLITAZONE HCL [Suspect]

REACTIONS (5)
  - FAILURE TO THRIVE [None]
  - URINARY TRACT INFECTION [None]
  - PAIN [None]
  - SPINAL COMPRESSION FRACTURE [None]
  - WEIGHT DECREASED [None]
